FAERS Safety Report 9014652 (Version 4)
Quarter: 2013Q1

REPORT INFORMATION
  Report Type: Spontaneous
  Country: US (occurrence: US)
  Receive Date: 20130115
  Receipt Date: 20130326
  Transmission Date: 20140127
  Serious: No
  Sender: FDA-Public Use
  Company Number: US-ASTRAZENECA-2009SE10495

PATIENT
  Age: 61 Year
  Sex: Female

DRUGS (2)
  1. NEXIUM [Suspect]
     Route: 048
  2. PRILOSEC [Suspect]
     Route: 048

REACTIONS (7)
  - Gastrooesophageal reflux disease [Unknown]
  - Pain [Unknown]
  - Dyspepsia [Unknown]
  - Malaise [Unknown]
  - Insomnia [Unknown]
  - Drug dose omission [Unknown]
  - Drug ineffective [Unknown]
